FAERS Safety Report 8837910 (Version 1)
Quarter: 2012Q4

REPORT INFORMATION
  Report Type: 
  Country: US (occurrence: US)
  Receive Date: 20121012
  Receipt Date: 20121012
  Transmission Date: 20130627
  Serious: Yes (Other)
  Sender: FDA-Public Use
  Company Number: US-PFIZER INC-2012253829

PATIENT
  Sex: Male

DRUGS (1)
  1. ZOLOFT [Suspect]
     Indication: DEPRESSION
     Dosage: 100 mg, 1x/day
     Route: 048
     Dates: start: 2004, end: 201208

REACTIONS (6)
  - Arthralgia [Not Recovered/Not Resolved]
  - Dizziness [Unknown]
  - Myalgia [Not Recovered/Not Resolved]
  - Vision blurred [Unknown]
  - Irritability [Unknown]
  - Restlessness [Unknown]
